FAERS Safety Report 9310650 (Version 9)
Quarter: 2014Q2

REPORT INFORMATION
  Report Type: Spontaneous
  Country: US (occurrence: US)
  Receive Date: 20130527
  Receipt Date: 20140410
  Transmission Date: 20141212
  Serious: No
  Sender: FDA-Public Use
  Company Number: US-009507513-1305USA009407

PATIENT
  Age: 57 Year
  Sex: Male

DRUGS (6)
  1. PEGINTRON [Suspect]
     Indication: HEPATITIS C
     Dosage: 120 MICROGRAM, UNK (REDIPEN)
     Route: 058
     Dates: start: 20130510, end: 20131206
  2. PEGINTRON [Suspect]
     Dosage: 80 MICROGRAM, UNK (REDIPEN)
  3. REBETOL [Suspect]
     Indication: HEPATITIS C
     Dosage: 200 MG, BID
     Route: 048
     Dates: start: 20130510, end: 20131213
  4. REBETOL [Suspect]
     Dosage: 300 MG IN THE MORNING AND 400 MG IN THE EVENING
  5. VICTRELIS [Suspect]
     Indication: HEPATITIS C
     Dosage: UNK UNK, TID
     Route: 048
     Dates: start: 20130607, end: 20131213
  6. LISINOPRIL [Concomitant]
     Dosage: 1 DF, QD

REACTIONS (34)
  - Muscle atrophy [Unknown]
  - Gastrointestinal disorder [Unknown]
  - Eye disorder [Unknown]
  - Thought blocking [Unknown]
  - Muscle spasms [Unknown]
  - Chills [Unknown]
  - Hyperhidrosis [Unknown]
  - Chills [Unknown]
  - Muscle spasms [Unknown]
  - Injection site reaction [Unknown]
  - Drug dose omission [Unknown]
  - Weight decreased [Unknown]
  - Decreased appetite [Unknown]
  - Nausea [Unknown]
  - Anaemia [Unknown]
  - Red blood cell count decreased [Unknown]
  - White blood cell count decreased [Unknown]
  - Asthenia [Unknown]
  - Fatigue [Unknown]
  - Dyspnoea [Unknown]
  - Dysgeusia [Unknown]
  - Pollakiuria [Unknown]
  - Nocturia [Unknown]
  - Memory impairment [Unknown]
  - Vomiting [Unknown]
  - Thrombocytopenia [Recovering/Resolving]
  - Influenza like illness [Unknown]
  - Pruritus [Unknown]
  - Headache [Unknown]
  - Photophobia [Unknown]
  - Alopecia [Unknown]
  - Peripheral swelling [Unknown]
  - Malaise [Unknown]
  - Feeling abnormal [Unknown]
